FAERS Safety Report 14229913 (Version 1)
Quarter: 2017Q4

REPORT INFORMATION
  Report Type: Report from Study
  Country: US (occurrence: US)
  Receive Date: 20171128
  Receipt Date: 20171128
  Transmission Date: 20180321
  Serious: Yes (Hospitalization)
  Sender: FDA-Public Use
  Company Number: US-JNJFOC-20160106520

PATIENT
  Sex: Male

DRUGS (7)
  1. XARELTO [Concomitant]
     Active Substance: RIVAROXABAN
  2. ZEBETA [Concomitant]
     Active Substance: BISOPROLOL FUMARATE
  3. IMBRUVICA [Suspect]
     Active Substance: IBRUTINIB
     Indication: CHRONIC LYMPHOCYTIC LEUKAEMIA
     Route: 048
     Dates: start: 20151126
  4. BACTRIM [Concomitant]
     Active Substance: SULFAMETHOXAZOLE\TRIMETHOPRIM
  5. CIPRO [Concomitant]
     Active Substance: CIPROFLOXACIN HYDROCHLORIDE
  6. IMBRUVICA [Suspect]
     Active Substance: IBRUTINIB
     Indication: CHRONIC LYMPHOCYTIC LEUKAEMIA
     Route: 048
     Dates: start: 20160217
  7. FLOMAX [Concomitant]
     Active Substance: TAMSULOSIN HYDROCHLORIDE

REACTIONS (6)
  - Rhinorrhoea [Unknown]
  - Rash erythematous [Unknown]
  - Epistaxis [Unknown]
  - Atrial fibrillation [Unknown]
  - Ear discomfort [Unknown]
  - Drug dose omission [Recovered/Resolved]
